FAERS Safety Report 8947423 (Version 1)
Quarter: 2012Q4

REPORT INFORMATION
  Report Type: 
  Country: BR (occurrence: BR)
  Receive Date: 20121205
  Receipt Date: 20121205
  Transmission Date: 20130627
  Serious: Yes (Death, Hospitalization)
  Sender: FDA-Public Use
  Company Number: BR-B.I. PHARMACEUTICALS,INC./RIDGEFIELD-2012-BR-01343BR

PATIENT
  Age: 84 Year
  Sex: Female
  Weight: 30 kg

DRUGS (5)
  1. SPIRIVA RESPIMAT [Suspect]
     Indication: CHRONIC OBSTRUCTIVE PULMONARY DISEASE
     Dosage: 5 mcg
     Route: 055
     Dates: start: 2007, end: 20120831
  2. CARDIZEM [Concomitant]
     Indication: CARDIAC DISORDER
     Dates: start: 1996, end: 20120831
  3. DONAREN [Concomitant]
     Indication: OSTEOPOROSIS
     Dates: start: 1998, end: 20120831
  4. LOMBRICES [Concomitant]
     Indication: LUNG DISORDER
     Dates: start: 1996, end: 20120831
  5. DIMETICONE [Concomitant]

REACTIONS (1)
  - Respiratory tract infection [Fatal]
